FAERS Safety Report 4903364-5 (Version None)
Quarter: 2006Q1

REPORT INFORMATION
  Report Type: 
  Country: None (occurrence: None)
  Receive Date: 20060206
  Receipt Date: 20060206
  Transmission Date: 20060701
  Serious: Yes (Hospitalization)
  Sender: FDA-Public Use
  Company Number: None

PATIENT
  Age: 18 Year
  Sex: Male

DRUGS (2)
  1. METHOTREXATE [Suspect]
     Dosage: SEE IMAGE
     Route: 048
  2. CSF [Concomitant]

REACTIONS (9)
  - ASTHENIA [None]
  - CONFUSIONAL STATE [None]
  - DISEASE PROGRESSION [None]
  - EYELID PTOSIS [None]
  - FACIAL PARESIS [None]
  - HYPERSOMNIA [None]
  - INCORRECT DOSE ADMINISTERED [None]
  - LEUKOENCEPHALOPATHY [None]
  - SPEECH DISORDER [None]
